FAERS Safety Report 4309937-5 (Version None)
Quarter: 2004Q1

REPORT INFORMATION
  Report Type: 
  Country: None (occurrence: None)
  Receive Date: 20040303
  Receipt Date: 20040130
  Transmission Date: 20041129
  Serious: No
  Sender: FDA-Public Use
  Company Number: US-BRISTOL-MYERS SQUIBB COMPANY-12492997

PATIENT
  Age: 17 Year
  Sex: Female
  Weight: 45 kg

DRUGS (1)
  1. ABILIFY [Suspect]
     Dosage: INITIAL DOSE 5 MG/DAY, TITRATED TO 15 MG/DAY, DECREASED TO 10 MG/DAY
     Route: 048

REACTIONS (1)
  - MUSCULOSKELETAL STIFFNESS [None]
